FAERS Safety Report 9713782 (Version 1)
Quarter: 2013Q4

REPORT INFORMATION
  Report Type: Spontaneous
  Country: US (occurrence: None)
  Receive Date: 20131125
  Receipt Date: 20131125
  Transmission Date: 20140711
  Serious: Yes (Hospitalization)
  Sender: FDA-Public Use
  Company Number: None

PATIENT
  Age: 80 Year
  Sex: Male
  Weight: 49.2 kg

DRUGS (1)
  1. CEFEPIME [Suspect]
     Indication: PNEUMONIA
     Dosage: 2 GM, ONCE, IV
     Route: 042
     Dates: start: 20131006, end: 20131006

REACTIONS (1)
  - Convulsion [None]
